FAERS Safety Report 5616452-5 (Version None)
Quarter: 2008Q1

REPORT INFORMATION
  Report Type: 
  Country: None (occurrence: None)
  Receive Date: 20080207
  Receipt Date: 20071126
  Transmission Date: 20080703
  Serious: No
  Sender: FDA-Public Use
  Company Number: US-BAYER-200715406NA

PATIENT
  Age: 30 Year
  Sex: Female
  Weight: 68 kg

DRUGS (2)
  1. LEVLEN 28 [Suspect]
     Indication: CONTRACEPTION
     Route: 048
  2. LEVLITE [Suspect]

REACTIONS (2)
  - MEDICATION ERROR [None]
  - METRORRHAGIA [None]
